FAERS Safety Report 10149903 (Version 1)
Quarter: 2014Q2

REPORT INFORMATION
  Report Type: Spontaneous
  Country: US (occurrence: US)
  Receive Date: 20140502
  Receipt Date: 20140502
  Transmission Date: 20141212
  Serious: Yes (Other)
  Sender: FDA-Public Use
  Company Number: CHPA2014US005891

PATIENT
  Age: 85 Year
  Sex: Female

DRUGS (2)
  1. VOLTAREN GEL [Suspect]
     Indication: BACK PAIN
     Route: 065
  2. VOLTAREN GEL [Suspect]
     Indication: OFF LABEL USE

REACTIONS (5)
  - Mycobacterium avium complex infection [Not Recovered/Not Resolved]
  - Musculoskeletal pain [Not Recovered/Not Resolved]
  - Neck pain [Unknown]
  - Arthritis [Unknown]
  - Drug ineffective for unapproved indication [Unknown]
